FAERS Safety Report 8415058-2 (Version None)
Quarter: 2012Q2

REPORT INFORMATION
  Report Type: 
  Country: None (occurrence: None)
  Receive Date: 20120606
  Receipt Date: 20120528
  Transmission Date: 20120825
  Serious: Yes (Hospitalization, Disabling)
  Sender: FDA-Public Use
  Company Number: AU-US-EMD SERONO, INC.-7131226

PATIENT
  Sex: Female

DRUGS (2)
  1. REBIF [Suspect]
  2. REBIF [Suspect]
     Indication: PRODUCT USED FOR UNKNOWN INDICATION
     Dates: start: 20120405

REACTIONS (5)
  - PYREXIA [None]
  - ABASIA [None]
  - MULTIPLE SCLEROSIS RELAPSE [None]
  - DEVICE ISSUE [None]
  - SENSORY LOSS [None]
